FAERS Safety Report 4284659-8 (Version None)
Quarter: 2004Q1

REPORT INFORMATION
  Report Type: 
  Country: None (occurrence: None)
  Receive Date: 20040203
  Receipt Date: 20030616
  Transmission Date: 20041129
  Serious: Yes (Hospitalization)
  Sender: FDA-Public Use
  Company Number: WAES 0306FRA00053

PATIENT
  Age: 0 Day
  Sex: Female
  Weight: 2 kg

DRUGS (4)
  1. ASPIRIN [Concomitant]
     Indication: CONGESTIVE CARDIOMYOPATHY
  2. DIGOXIN [Concomitant]
     Indication: CONGESTIVE CARDIOMYOPATHY
  3. COZAAR [Suspect]
     Indication: HYPERTENSION
  4. COZAAR [Suspect]
     Indication: CONGESTIVE CARDIOMYOPATHY

REACTIONS (2)
  - GROWTH RETARDATION [None]
  - MATERNAL DRUGS AFFECTING FOETUS [None]
